FAERS Safety Report 24240579 (Version 2)
Quarter: 2025Q2

REPORT INFORMATION
  Report Type: Spontaneous
  Country: DE (occurrence: DE)
  Receive Date: 20240822
  Receipt Date: 20250420
  Transmission Date: 20250716
  Serious: No
  Sender: AMGEN
  Company Number: DE-AMGEN-DEUSP2024161987

PATIENT
  Sex: Female

DRUGS (1)
  1. PROLIA [Suspect]
     Active Substance: DENOSUMAB
     Indication: Product used for unknown indication
     Route: 065

REACTIONS (1)
  - Jaw disorder [Unknown]
